FAERS Safety Report 8294014-1 (Version None)
Quarter: 2012Q2

REPORT INFORMATION
  Report Type: 
  Country: None (occurrence: None)
  Receive Date: 20120413
  Receipt Date: 20120413
  Transmission Date: 20120825
  Serious: No
  Sender: FDA-Public Use
  Company Number: None

PATIENT
  Age: 81 Year
  Sex: Female

DRUGS (1)
  1. NIACIN [Suspect]
     Dates: start: 20101208, end: 20110505

REACTIONS (6)
  - GAIT DISTURBANCE [None]
  - ASTHENIA [None]
  - HYPOPHAGIA [None]
  - HEADACHE [None]
  - ANTINUCLEAR ANTIBODY POSITIVE [None]
  - HEPATITIS [None]
